FAERS Safety Report 10136531 (Version 1)
Quarter: 2014Q2

REPORT INFORMATION
  Report Type: Spontaneous
  Country: US (occurrence: None)
  Receive Date: 20140428
  Receipt Date: 20140428
  Transmission Date: 20141212
  Serious: Yes (Hospitalization)
  Sender: FDA-Public Use
  Company Number: None

PATIENT
  Age: 51 Year
  Sex: Female

DRUGS (3)
  1. OLYSIO [Suspect]
     Indication: VIRAL INFECTION
     Dosage: TAKE ONE CAPSULE BY MOUTH DAILY WITH FOOD
     Route: 048
  2. OLYSIO [Suspect]
     Indication: HEPATITIS C
     Dosage: TAKE ONE CAPSULE BY MOUTH DAILY WITH FOOD
     Route: 048
  3. SOVALDI 400MG TABLET [Concomitant]

REACTIONS (1)
  - Haematocrit decreased [None]
